FAERS Safety Report 9022897 (Version 1)
Quarter: 2013Q1

REPORT INFORMATION
  Report Type: Spontaneous
  Country: US (occurrence: US)
  Receive Date: 20130120
  Receipt Date: 20130120
  Transmission Date: 20140127
  Serious: No
  Sender: FDA-Public Use
  Company Number: US-ALLERGAN-1216708US

PATIENT
  Age: 34 None
  Sex: Female

DRUGS (14)
  1. BOTOX? [Suspect]
     Indication: MIGRAINE
     Dosage: 150 UNITS, SINGLE
     Route: 030
     Dates: start: 20121101, end: 20121101
  2. TOPAMAX [Concomitant]
     Indication: MIGRAINE
     Dosage: 25 MG, QD
     Route: 048
  3. IMITREX                            /01044801/ [Concomitant]
     Indication: MIGRAINE
     Dosage: 100 MG, PRN
     Route: 048
  4. FLEXERIL                           /00428402/ [Concomitant]
     Indication: PRODUCT USED FOR UNKNOWN INDICATION
     Dosage: 5 MG, QD
     Route: 048
  5. BCP [Concomitant]
     Indication: CONTRACEPTION
     Dosage: UNK, QD
     Route: 048
  6. PROVIGIL [Concomitant]
     Indication: PRODUCT USED FOR UNKNOWN INDICATION
     Dosage: 200 MG, BID
     Route: 048
  7. FEVER FEW [Concomitant]
     Indication: NUTRITIONAL SUPPLEMENTATION
     Dosage: 380 MG, QD
     Route: 048
  8. VITAMIN C [Concomitant]
     Indication: NUTRITIONAL SUPPLEMENTATION
     Dosage: 1000 MG, QD
     Route: 048
  9. VITAMIN D [Concomitant]
     Indication: NUTRITIONAL SUPPLEMENTATION
     Dosage: QD
     Route: 048
  10. MAGNESIUM [Concomitant]
     Indication: NUTRITIONAL SUPPLEMENTATION
     Dosage: 500 MG, TID
     Route: 048
  11. NIACIN [Concomitant]
     Indication: SUPPLEMENTATION THERAPY
     Dosage: 500 MG, QD
     Route: 048
  12. UNSPECIFIED PAIN RELIEVER [Concomitant]
     Indication: PAIN
     Dosage: UNK, QD
     Route: 048
  13. POTASSIUM [Concomitant]
     Indication: NUTRITIONAL SUPPLEMENTATION
     Dosage: 20 MEQ, QD
     Route: 048
  14. MVI [Concomitant]
     Indication: NUTRITIONAL SUPPLEMENTATION
     Dosage: UNK, QD
     Route: 048

REACTIONS (2)
  - Sinusitis [Unknown]
  - Pain in jaw [Unknown]
